FAERS Safety Report 4414389-0 (Version None)
Quarter: 2004Q3

REPORT INFORMATION
  Report Type: 
  Country: None (occurrence: None)
  Receive Date: 20040729
  Receipt Date: 20040713
  Transmission Date: 20050211
  Serious: Yes (Other)
  Sender: FDA-Public Use
  Company Number: PHBS2004AT09638

PATIENT
  Age: 72 Year
  Sex: Female

DRUGS (1)
  1. VISUDYNE [Suspect]
     Indication: RETINAL DYSTROPHY
     Dosage: 6 MG/M^2 ONCE IV
     Route: 042

REACTIONS (2)
  - CHORIORETINOPATHY [None]
  - RETINAL DYSTROPHY [None]
